FAERS Safety Report 11318427 (Version 3)
Quarter: 2016Q1

REPORT INFORMATION
  Report Type: Spontaneous
  Country: US (occurrence: US)
  Receive Date: 20150728
  Receipt Date: 20160121
  Transmission Date: 20160525
  Serious: Yes (Hospitalization, Other)
  Sender: FDA-Public Use
  Company Number: US-AMGEN-USASP2015075177

PATIENT
  Age: 53 Year
  Sex: Male

DRUGS (4)
  1. ENBREL [Suspect]
     Active Substance: ETANERCEPT
     Indication: PRODUCT USED FOR UNKNOWN INDICATION
     Dosage: UNK UNK, UNK
     Route: 065
     Dates: end: 201507
  2. HUMIRA [Concomitant]
     Active Substance: ADALIMUMAB
     Dosage: UNK
  3. ENBREL [Suspect]
     Active Substance: ETANERCEPT
     Dosage: UNK
     Route: 065
  4. PREDNISONE. [Concomitant]
     Active Substance: PREDNISONE
     Dosage: UNK

REACTIONS (13)
  - Condition aggravated [Unknown]
  - Mobility decreased [Unknown]
  - Platelet count decreased [Unknown]
  - Infection [Unknown]
  - White blood cell count increased [Unknown]
  - Gait disturbance [Unknown]
  - Skin discolouration [Unknown]
  - Renal disorder [Unknown]
  - Therapeutic response changed [Unknown]
  - Haemorrhage [Unknown]
  - Haemoglobin abnormal [Unknown]
  - Joint range of motion decreased [Unknown]
  - Mass [Unknown]

NARRATIVE: CASE EVENT DATE: 2015
